FAERS Safety Report 17565943 (Version 1)
Quarter: 2020Q1

REPORT INFORMATION
  Report Type: Report from Study
  Country: US (occurrence: US)
  Receive Date: 20200320
  Receipt Date: 20200320
  Transmission Date: 20200409
  Serious: Yes (Death, Other)
  Sender: FDA-Public Use
  Company Number: US-SUN PHARMACEUTICAL INDUSTRIES LTD-2020R1-240488

PATIENT
  Age: 74 Year
  Sex: Male

DRUGS (1)
  1. CLOZAPINE. [Suspect]
     Active Substance: CLOZAPINE
     Indication: PRODUCT USED FOR UNKNOWN INDICATION
     Dosage: 100MG AT A.M AND 300MG AT NIGHT, BID
     Route: 048

REACTIONS (2)
  - Death [Fatal]
  - Neutrophilia [Not Recovered/Not Resolved]

NARRATIVE: CASE EVENT DATE: 20191231
